FAERS Safety Report 7571126-9 (Version None)
Quarter: 2011Q2

REPORT INFORMATION
  Report Type: 
  Country: None (occurrence: None)
  Receive Date: 20110624
  Receipt Date: 20110614
  Transmission Date: 20111010
  Serious: Yes (Hospitalization)
  Sender: FDA-Public Use
  Company Number: KR-ACTELION-A-CH2011-50304

PATIENT
  Sex: Female
  Weight: 41.9 kg

DRUGS (5)
  1. TRACLEER [Suspect]
     Dosage: 125 MG, OD
     Route: 048
     Dates: start: 20070117, end: 20070717
  2. TRACLEER [Suspect]
     Indication: PULMONARY ARTERIAL HYPERTENSION
     Dosage: 125 MG, BID
     Route: 048
     Dates: start: 20081101, end: 20090727
  3. TRACLEER [Suspect]
     Dosage: 62.5 MG, OD
     Route: 048
     Dates: start: 20070103, end: 20070116
  4. TRACLEER [Suspect]
     Dosage: 125 MG, BID
     Route: 048
     Dates: end: 20110531
  5. TRACLEER [Suspect]
     Dosage: 187.5 MG, OD
     Route: 048
     Dates: start: 20070718, end: 20081031

REACTIONS (3)
  - SEPSIS [None]
  - MULTI-ORGAN FAILURE [None]
  - DIALYSIS [None]
